FAERS Safety Report 18229352 (Version 1)
Quarter: 2020Q3

REPORT INFORMATION
  Report Type: Spontaneous
  Country: US (occurrence: US)
  Receive Date: 20200903
  Receipt Date: 20200903
  Transmission Date: 20201103
  Serious: Yes (Other)
  Sender: FDA-Public Use
  Company Number: US-AKORN PHARMACEUTICALS-2020AKN01079

PATIENT
  Sex: Female
  Weight: 53.06 kg

DRUGS (1)
  1. MYORISAN [Suspect]
     Active Substance: ISOTRETINOIN
     Indication: ACNE
     Dosage: 30 MG, 2X/DAY
     Route: 048
     Dates: start: 20200708, end: 20200810

REACTIONS (3)
  - Photosensitivity reaction [Unknown]
  - Dry skin [Unknown]
  - Mood swings [Unknown]

NARRATIVE: CASE EVENT DATE: 2020
